FAERS Safety Report 10989907 (Version 1)
Quarter: 2015Q2

REPORT INFORMATION
  Report Type: Spontaneous
  Country: US (occurrence: US)
  Receive Date: 20150406
  Receipt Date: 20150406
  Transmission Date: 20150821
  Serious: Yes (Hospitalization)
  Sender: FDA-Public Use
  Company Number: US-ELI_LILLY_AND_COMPANY-US201412004768

PATIENT
  Sex: Male
  Weight: 75.28 kg

DRUGS (2)
  1. GEMZAR [Suspect]
     Active Substance: GEMCITABINE HYDROCHLORIDE
     Indication: PANCREATIC CARCINOMA
     Dosage: 1488 MG, CYCLICAL
     Route: 042
     Dates: start: 20141110, end: 20141208
  2. ABRAXANE [Concomitant]
     Active Substance: PACLITAXEL
     Indication: PANCREATIC CARCINOMA

REACTIONS (1)
  - Cellulitis [Recovered/Resolved]
